FAERS Safety Report 7547143-1 (Version None)
Quarter: 2011Q2

REPORT INFORMATION
  Report Type: 
  Country: None (occurrence: None)
  Receive Date: 20110614
  Receipt Date: 20110602
  Transmission Date: 20111010
  Serious: Yes (Other)
  Sender: FDA-Public Use
  Company Number: PHHY2011CZ48276

PATIENT
  Age: 68 Year
  Sex: Male

DRUGS (2)
  1. ZOMETA [Suspect]
     Indication: PROPHYLAXIS
     Dosage: 1 DF (1APPLICATION/28 DAYS)
     Dates: start: 20081001, end: 20100402
  2. ZOMETA [Suspect]
     Dosage: 1 DF (1APPLICATION/28 DAYS)
     Dates: start: 20101201, end: 20110501

REACTIONS (3)
  - IMPAIRED HEALING [None]
  - OSTEONECROSIS OF JAW [None]
  - EXPOSED BONE IN JAW [None]
